FAERS Safety Report 23848068 (Version 1)
Quarter: 2024Q2

REPORT INFORMATION
  Report Type: Spontaneous
  Country: AU (occurrence: AU)
  Receive Date: 20240513
  Receipt Date: 20240513
  Transmission Date: 20240715
  Serious: Yes (Hospitalization, Other)
  Sender: FDA-Public Use
  Company Number: AU-GLAXOSMITHKLINE-AU2024APC057684

PATIENT

DRUGS (7)
  1. ANORO ELLIPTA [Suspect]
     Active Substance: UMECLIDINIUM BROMIDE\VILANTEROL TRIFENATATE
     Indication: Product used for unknown indication
     Dosage: UNK
  2. TRELEGY ELLIPTA [Suspect]
     Active Substance: FLUTICASONE FUROATE\UMECLIDINIUM BROMIDE\VILANTEROL TRIFENATATE
     Indication: Product used for unknown indication
     Dosage: UNK
  3. ALBUTEROL [Suspect]
     Active Substance: ALBUTEROL
     Indication: Product used for unknown indication
     Dosage: UNK
  4. IRBESARTAN [Suspect]
     Active Substance: IRBESARTAN
     Indication: Product used for unknown indication
     Dosage: UNK
  5. ASPIRIN [Suspect]
     Active Substance: ASPIRIN
     Indication: Product used for unknown indication
     Dosage: UNK
  6. ROSUVASTATIN [Suspect]
     Active Substance: ROSUVASTATIN
     Indication: Product used for unknown indication
     Dosage: UNK
  7. SPIRIVA [Suspect]
     Active Substance: TIOTROPIUM BROMIDE MONOHYDRATE
     Indication: Product used for unknown indication
     Dosage: UNK

REACTIONS (12)
  - Lower respiratory tract infection [Unknown]
  - Obstructive airways disorder [Unknown]
  - Emphysema [Unknown]
  - Asbestosis [Unknown]
  - Ankle fracture [Unknown]
  - Dyspnoea [Unknown]
  - Cough [Unknown]
  - Wheezing [Unknown]
  - Angiocardiogram [Unknown]
  - Coronary artery disease [Unknown]
  - Malaise [Unknown]
  - Chronic obstructive pulmonary disease [Unknown]
